FAERS Safety Report 9342739 (Version 2)
Quarter: 2013Q2

REPORT INFORMATION
  Report Type: Report from Study
  Country: JP (occurrence: JP)
  Receive Date: 20130611
  Receipt Date: 20130627
  Transmission Date: 20140414
  Serious: Yes (Hospitalization)
  Sender: FDA-Public Use
  Company Number: JP-EISAI INC-E2007-01207-CLI-JP

PATIENT
  Age: 27 Year
  Sex: Male
  Weight: 67 kg

DRUGS (7)
  1. E2007 (PERAMPANEL) [Suspect]
     Indication: PARTIAL SEIZURES
     Dosage: CORE STUDY
     Route: 048
     Dates: start: 20121031, end: 20130404
  2. E2007 (PERAMPANEL) [Suspect]
     Dosage: OPEN LABEL -  CONVERSION
     Route: 048
     Dates: start: 20130405, end: 20130521
  3. E2007 (PERAMPANEL) [Suspect]
     Route: 048
     Dates: start: 20130522
  4. TEGRETOL [Concomitant]
     Dosage: 200 MG IN AM AND PM, 500 MG IN EVENING
     Route: 048
     Dates: start: 20120622
  5. GABAPEN [Concomitant]
     Dosage: 600 MG IN AM AND PM, 800 MG IN EVENING
     Route: 048
     Dates: start: 20110617
  6. DEPAKENE [Concomitant]
     Dates: start: 20120822
  7. DEPAKENE-R [Concomitant]
     Route: 048
     Dates: start: 20120822

REACTIONS (1)
  - Pneumonia [Recovering/Resolving]
